FAERS Safety Report 6686639-1 (Version None)
Quarter: 2010Q2

REPORT INFORMATION
  Report Type: 
  Country: None (occurrence: None)
  Receive Date: 20100416
  Receipt Date: 20100416
  Transmission Date: 20101027
  Serious: Yes (Hospitalization, Disabling, Other)
  Sender: FDA-Public Use
  Company Number: None

PATIENT
  Sex: Male
  Weight: 114 kg

DRUGS (1)
  1. CARIMUNE [Suspect]
     Indication: AUTOIMMUNE THROMBOCYTOPENIA
     Dosage: 45GM DAILY IV
     Route: 042
     Dates: start: 20100306, end: 20100309

REACTIONS (4)
  - ABDOMINAL DISTENSION [None]
  - DIALYSIS [None]
  - RENAL FAILURE ACUTE [None]
  - WEIGHT INCREASED [None]
